FAERS Safety Report 13078104 (Version 3)
Quarter: 2017Q1

REPORT INFORMATION
  Report Type: Spontaneous
  Country: TR (occurrence: TR)
  Receive Date: 20170102
  Receipt Date: 20170201
  Transmission Date: 20170428
  Serious: Yes (Life-Threatening, Hospitalization, Other)
  Sender: FDA-Public Use
  Company Number: TR-SUN PHARMACEUTICAL INDUSTRIES LTD-2016RR-130575

PATIENT
  Age: 17 Year
  Sex: Female

DRUGS (1)
  1. VENLAFAXINE [Suspect]
     Active Substance: VENLAFAXINE HYDROCHLORIDE
     Indication: PRODUCT USED FOR UNKNOWN INDICATION
     Dosage: EXTENDED RELEASE; TOTAL INGESTED DOSE WAS APPROXIMATELY 3900 MG
     Route: 048
     Dates: start: 20150301

REACTIONS (8)
  - Toxicity to various agents [Recovered/Resolved]
  - Mental disorder [Recovered/Resolved]
  - Somnolence [Recovered/Resolved]
  - Intentional overdose [Recovered/Resolved]
  - Lactic acidosis [Recovered/Resolved]
  - Coma scale abnormal [Recovered/Resolved]
  - Sinus tachycardia [Recovered/Resolved]
  - Suicide attempt [Unknown]

NARRATIVE: CASE EVENT DATE: 20150301
